FAERS Safety Report 9472649 (Version 1)
Quarter: 2013Q3

REPORT INFORMATION
  Report Type: Spontaneous
  Country: BR (occurrence: BR)
  Receive Date: 20130823
  Receipt Date: 20130823
  Transmission Date: 20140515
  Serious: Yes (Other)
  Sender: FDA-Public Use
  Company Number: BR-AMGEN-BRASP2013059442

PATIENT
  Age: 49 Year
  Sex: Female
  Weight: 63.2 kg

DRUGS (2)
  1. ENBREL [Suspect]
     Indication: RHEUMATOID ARTHRITIS
     Dosage: 50 MG, 1X/WEEK
     Route: 058
     Dates: start: 2011
  2. ENBREL [Suspect]
     Dosage: UNK
     Route: 065
     Dates: start: 201306

REACTIONS (4)
  - Incorrect product storage [Recovered/Resolved]
  - Poor quality drug administered [Recovered/Resolved]
  - Pulpitis dental [Not Recovered/Not Resolved]
  - Tuberculosis [Unknown]
